FAERS Safety Report 5740551-0 (Version None)
Quarter: 2008Q2

REPORT INFORMATION
  Report Type: 
  Country: None (occurrence: None)
  Receive Date: 20080516
  Receipt Date: 20080513
  Transmission Date: 20081010
  Serious: Yes (Other)
  Sender: FDA-Public Use
  Company Number: US-ABBOTT-08P-163-0451572-00

PATIENT
  Age: 32 Year
  Sex: Female

DRUGS (2)
  1. KALETRA [Suspect]
     Indication: ANTIRETROVIRAL THERAPY
     Dosage: 800/200 MILLIGRAM
     Route: 048
     Dates: start: 20070807
  2. LAMIVUDINE + ZIDOVUDINE [Suspect]
     Indication: ANTIRETROVIRAL THERAPY
     Dosage: 600/300 MILLIGRAM
     Dates: start: 20070807

REACTIONS (3)
  - BLEEDING VARICOSE VEIN [None]
  - HAEMORRHAGE [None]
  - STILLBIRTH [None]
